FAERS Safety Report 25575498 (Version 1)
Quarter: 2025Q3

REPORT INFORMATION
  Report Type: Spontaneous
  Country: AU (occurrence: AU)
  Receive Date: 20250718
  Receipt Date: 20250718
  Transmission Date: 20251021
  Serious: Yes (Other)
  Sender: ADAPTIS PHARMA INDIA
  Company Number: AU-ADAPTIS-ADA-2025-AU-LIT-000048

PATIENT
  Sex: Female

DRUGS (2)
  1. GLYCOPYRROLATE [Suspect]
     Active Substance: GLYCOPYRROLATE
     Indication: Sinus bradycardia
     Route: 065
  2. METARAMINOL [Suspect]
     Active Substance: METARAMINOL
     Indication: Prophylaxis
     Route: 065

REACTIONS (2)
  - Cardiomyopathy [Recovered/Resolved]
  - Maternal exposure during delivery [Unknown]
